FAERS Safety Report 6983752-6 (Version None)
Quarter: 2010Q3

REPORT INFORMATION
  Report Type: 
  Country: None (occurrence: None)
  Receive Date: 20100914
  Receipt Date: 20081204
  Transmission Date: 20110219
  Serious: No
  Sender: FDA-Public Use
  Company Number: US-WYE-H07081908

PATIENT
  Sex: Female
  Weight: 52.21 kg

DRUGS (3)
  1. ADVIL LIQUI-GELS [Suspect]
     Indication: ARTHRALGIA
     Dosage: 3 TABLETS TWICE PER DAY WITH FOOD
     Route: 048
     Dates: start: 20081001, end: 20081201
  2. GLUCOSAMINE [Concomitant]
  3. COZAAR [Concomitant]

REACTIONS (3)
  - CONDITION AGGRAVATED [None]
  - HYPERTENSION [None]
  - INCORRECT DOSE ADMINISTERED [None]
